FAERS Safety Report 23061653 (Version 2)
Quarter: 2024Q1

REPORT INFORMATION
  Report Type: Spontaneous
  Country: US (occurrence: US)
  Receive Date: 20231013
  Receipt Date: 20240213
  Transmission Date: 20240409
  Serious: No
  Sender: FDA-Public Use
  Company Number: US-SA-SAC20231009000592

PATIENT
  Age: 63 Year
  Sex: Female

DRUGS (5)
  1. DUPIXENT [Suspect]
     Active Substance: DUPILUMAB
     Indication: Dermatitis atopic
     Dosage: 300 MG, QOW
     Route: 058
     Dates: start: 202102
  2. DUPIXENT [Suspect]
     Active Substance: DUPILUMAB
     Indication: Psoriasis
  3. TREMFYA [Concomitant]
     Active Substance: GUSELKUMAB
     Indication: Psoriasis
  4. OTEZLA [Concomitant]
     Active Substance: APREMILAST
     Indication: Dermatitis atopic
  5. FLUOCINOLONE [Concomitant]
     Active Substance: FLUOCINOLONE
     Indication: Dehydration

REACTIONS (7)
  - Burning sensation [Unknown]
  - Dry skin [Unknown]
  - Dandruff [Unknown]
  - Pruritus [Unknown]
  - Rash [Unknown]
  - Dermatitis atopic [Unknown]
  - Product use in unapproved indication [Unknown]

NARRATIVE: CASE EVENT DATE: 20230901
